FAERS Safety Report 12341476 (Version 1)
Quarter: 2016Q2

REPORT INFORMATION
  Report Type: Spontaneous
  Country: US (occurrence: None)
  Receive Date: 20160505
  Receipt Date: 20160505
  Transmission Date: 20160815
  Serious: No
  Sender: FDA-Public Use
  Company Number: None

PATIENT
  Age: 37 Year
  Sex: Female

DRUGS (6)
  1. PROVIGIL [Concomitant]
     Active Substance: MODAFINIL
  2. AMPYRA [Suspect]
     Active Substance: DALFAMPRIDINE
     Indication: MULTIPLE SCLEROSIS
     Route: 048
     Dates: start: 201010
  3. LEVOTHYROXINE. [Concomitant]
     Active Substance: LEVOTHYROXINE
  4. DITROPAN [Concomitant]
     Active Substance: OXYBUTYNIN CHLORIDE
  5. AVIANE [Concomitant]
     Active Substance: ETHINYL ESTRADIOL\LEVONORGESTREL
  6. TYSABRI [Concomitant]
     Active Substance: NATALIZUMAB

REACTIONS (1)
  - Laboratory test abnormal [None]

NARRATIVE: CASE EVENT DATE: 20160428
